FAERS Safety Report 9624323 (Version 2)
Quarter: 2014Q2

REPORT INFORMATION
  Report Type: Spontaneous
  Country: JP (occurrence: JP)
  Receive Date: 20131015
  Receipt Date: 20140521
  Transmission Date: 20141212
  Serious: Yes (Life-Threatening, Hospitalization)
  Sender: FDA-Public Use
  Company Number: JP-EISAI INC-E7389-04279-SPO-JP

PATIENT
  Age: 57 Year
  Sex: Female
  Weight: 58 kg

DRUGS (5)
  1. HALAVEN [Suspect]
     Indication: BREAST CANCER
     Dosage: 2.3 MG
     Route: 041
     Dates: start: 20130412, end: 201306
  2. HALAVEN [Suspect]
     Dosage: 2 MG
     Route: 041
     Dates: start: 20130625, end: 20130917
  3. METHOTREXATE [Suspect]
     Indication: RHEUMATOID ARTHRITIS
     Route: 048
     Dates: start: 2008, end: 201308
  4. METHOTREXATE [Suspect]
     Route: 048
     Dates: start: 201308, end: 201311
  5. ENBREL [Suspect]
     Indication: RHEUMATOID ARTHRITIS
     Route: 058
     Dates: start: 2011

REACTIONS (2)
  - Interstitial lung disease [Recovering/Resolving]
  - Febrile neutropenia [Unknown]
